FAERS Safety Report 10172011 (Version 1)
Quarter: 2014Q2

REPORT INFORMATION
  Report Type: Spontaneous
  Country: BR (occurrence: BR)
  Receive Date: 20140515
  Receipt Date: 20140515
  Transmission Date: 20141212
  Serious: Yes (Other)
  Sender: FDA-Public Use
  Company Number: BR-PFIZER INC-2014130912

PATIENT
  Age: 65 Year
  Sex: Female

DRUGS (2)
  1. ATENOLOL [Suspect]
     Indication: ARRHYTHMIA
     Dosage: 50 MG, DAILY (2 DF DAILY)
     Route: 048
     Dates: end: 201404
  2. ATACAND HCT [Suspect]
     Indication: HYPERTENSION
     Dosage: 6+12.5 MG, DAILY
     Route: 048
     Dates: end: 201404

REACTIONS (1)
  - Angina pectoris [Recovered/Resolved]
